FAERS Safety Report 4430878-7 (Version None)
Quarter: 2004Q3

REPORT INFORMATION
  Report Type: 
  Country: None (occurrence: None)
  Receive Date: 20040823
  Receipt Date: 20040813
  Transmission Date: 20050211
  Serious: Yes (Disabling)
  Sender: FDA-Public Use
  Company Number: JP-GLAXOSMITHKLINE-B0342698A

PATIENT
  Age: 32 Year
  Sex: Female

DRUGS (6)
  1. PAXIL [Suspect]
     Indication: DEPRESSION
     Route: 048
     Dates: start: 20021022, end: 20030421
  2. PAXIL [Suspect]
     Dosage: 30MG TWICE PER DAY
     Route: 048
     Dates: start: 20030422
  3. ALPRAZOLAM [Suspect]
     Indication: ANXIETY
     Dosage: .4MG PER DAY
     Route: 048
     Dates: start: 20030422, end: 20031021
  4. SILECE [Suspect]
     Indication: INSOMNIA
     Dosage: 2MG PER DAY
     Route: 048
     Dates: start: 20030422, end: 20031021
  5. HALCION [Suspect]
     Indication: INSOMNIA
     Dosage: .125MG PER DAY
     Route: 048
     Dates: start: 20030422, end: 20031021
  6. LEXOTAN [Concomitant]
     Indication: ANXIETY
     Route: 048
     Dates: start: 20030422, end: 20031021

REACTIONS (1)
  - IMPULSIVE BEHAVIOUR [None]
